FAERS Safety Report 9312862 (Version 1)
Quarter: 2013Q2

REPORT INFORMATION
  Report Type: Spontaneous
  Country: US (occurrence: US)
  Receive Date: 20130528
  Receipt Date: 20130528
  Transmission Date: 20140414
  Serious: No
  Sender: FDA-Public Use
  Company Number: US-ASTRAZENECA-2013SE34759

PATIENT
  Age: 65 Year
  Sex: Male
  Weight: 136.1 kg

DRUGS (6)
  1. SYMBICORT [Suspect]
     Indication: CHRONIC OBSTRUCTIVE PULMONARY DISEASE
     Dosage: 160/4.5 MCG 1 PUFF BID
     Route: 055
  2. SPIRIVA [Concomitant]
  3. LISINOPRIL [Concomitant]
  4. BUPROPION [Concomitant]
  5. PREDNISONE [Concomitant]
     Dosage: 10MG
  6. ADVAIR [Concomitant]

REACTIONS (2)
  - Gingival swelling [Unknown]
  - Off label use [Unknown]
